FAERS Safety Report 19567671 (Version 1)
Quarter: 2021Q3

REPORT INFORMATION
  Report Type: Spontaneous
  Country: US (occurrence: US)
  Receive Date: 20210716
  Receipt Date: 20210716
  Transmission Date: 20211014
  Serious: No
  Sender: FDA-Public Use
  Company Number: US-SEPTODONT-202005925

PATIENT
  Age: 22 Year
  Sex: Female
  Weight: 50 kg

DRUGS (2)
  1. ORAVERSE [Suspect]
     Active Substance: PHENTOLAMINE MESYLATE
     Dosage: UP TO 2 CARTR. MAX.
     Route: 004
     Dates: start: 20201014, end: 20201014
  2. 2% LIDOCAINE, 1:100,000 EPINEPHRINE [Suspect]
     Active Substance: EPINEPHRINE BITARTRATE\LIDOCAINE HYDROCHLORIDE
     Dosage: 2.5 CARTR.  (4.5 ML.) TOTAL
     Route: 004
     Dates: start: 20201014, end: 20201014

REACTIONS (2)
  - Swelling [Recovered/Resolved]
  - Gingival swelling [Recovered/Resolved]

NARRATIVE: CASE EVENT DATE: 20201014
